FAERS Safety Report 8675697 (Version 2)
Quarter: 2012Q4

REPORT INFORMATION
  Report Type: 
  Country: FR (occurrence: FR)
  Receive Date: 20120720
  Receipt Date: 20120928
  Transmission Date: 20130627
  Serious: Yes (Hospitalization, Disabling)
  Sender: FDA-Public Use
  Company Number: FR-JNJFOC-20120705549

PATIENT
  Age: 60 Year
  Sex: Female

DRUGS (6)
  1. STELARA [Suspect]
     Indication: CROHN^S DISEASE
     Route: 058
     Dates: start: 201109
  2. STELARA [Suspect]
     Indication: CROHN^S DISEASE
     Route: 058
     Dates: start: 2010
  3. DUROGESIC [Concomitant]
     Route: 062
  4. SPASFON [Concomitant]
     Route: 062
  5. DEBRIDAT [Concomitant]
     Route: 065
  6. CORTICOSTEROIDS [Concomitant]
     Route: 065

REACTIONS (3)
  - Multiple sclerosis [Not Recovered/Not Resolved]
  - Inappropriate schedule of drug administration [Not Recovered/Not Resolved]
  - Off label use [Not Recovered/Not Resolved]
